FAERS Safety Report 6136204-X (Version None)
Quarter: 2009Q1

REPORT INFORMATION
  Report Type: 
  Country: None (occurrence: None)
  Receive Date: 20090330
  Receipt Date: 20090318
  Transmission Date: 20090719
  Serious: Yes (Life-Threatening, Hospitalization)
  Sender: FDA-Public Use
  Company Number: CA-BAYER-200915334NA

PATIENT
  Age: 71 Year
  Sex: Female

DRUGS (11)
  1. AVELOX [Suspect]
     Indication: DRUG USE FOR UNKNOWN INDICATION
     Dosage: TOTAL DAILY DOSE: 400 MG  UNIT DOSE: 400 MG
     Dates: start: 20090227
  2. ALTACE [Concomitant]
     Dosage: TOTAL DAILY DOSE: 5 MG
  3. BETA BLOCKING AGENTS [Concomitant]
  4. PLAVIX [Concomitant]
     Dosage: TOTAL DAILY DOSE: 75 MG
  5. INSULIN [Concomitant]
  6. PREVACID [Concomitant]
  7. CRESTOR [Concomitant]
  8. SPIRONOLACTONE [Concomitant]
  9. METOPROLOL [Concomitant]
     Dosage: TOTAL DAILY DOSE: 50 MG
  10. LASIX [Concomitant]
  11. PANTOPRAZOLE SODIUM [Concomitant]

REACTIONS (3)
  - BLOOD POTASSIUM INCREASED [None]
  - PULMONARY OEDEMA [None]
  - VENTRICULAR TACHYCARDIA [None]
